FAERS Safety Report 25406148 (Version 1)
Quarter: 2025Q2

REPORT INFORMATION
  Report Type: Spontaneous
  Country: US (occurrence: US)
  Receive Date: 20250606
  Receipt Date: 20250606
  Transmission Date: 20250717
  Serious: Yes (Other)
  Sender: SANOFI AVENTIS
  Company Number: US-SA-2025SA159876

PATIENT
  Sex: Female

DRUGS (1)
  1. DUPIXENT [Suspect]
     Active Substance: DUPILUMAB
     Indication: Dermatitis atopic
     Dosage: 300 MG, QOW
     Route: 058

REACTIONS (5)
  - Cerebrovascular accident [Unknown]
  - Limb discomfort [Unknown]
  - Rash pruritic [Not Recovered/Not Resolved]
  - Injection site erythema [Recovered/Resolved]
  - Eye pruritus [Unknown]
